FAERS Safety Report 4476081-6 (Version None)
Quarter: 2004Q4

REPORT INFORMATION
  Report Type: 
  Country: None (occurrence: None)
  Receive Date: 20041012
  Receipt Date: 20041001
  Transmission Date: 20050328
  Serious: Yes (Hospitalization)
  Sender: FDA-Public Use
  Company Number: 2004-10-0153

PATIENT
  Age: 88 Year
  Sex: Male

DRUGS (1)
  1. EULEXIN [Suspect]
     Indication: PROSTATE CANCER
     Dosage: 250 MG TID ORAL
     Route: 048

REACTIONS (1)
  - PNEUMONIA [None]
